FAERS Safety Report 10543017 (Version 1)
Quarter: 2014Q4

REPORT INFORMATION
  Report Type: Spontaneous
  Country: US (occurrence: None)
  Receive Date: 20141024
  Receipt Date: 20141024
  Transmission Date: 20150529
  Serious: No
  Sender: FDA-Public Use
  Company Number: None

PATIENT
  Age: 54 Year
  Sex: Female
  Weight: 67.59 kg

DRUGS (1)
  1. XOLAIR [Suspect]
     Active Substance: OMALIZUMAB
     Indication: URTICARIA
     Dosage: 300MG MONTHLY GIVEN INTO/UNDER THE SKIN
     Dates: start: 20140822, end: 20141023

REACTIONS (5)
  - Impaired healing [None]
  - Arthralgia [None]
  - Joint swelling [None]
  - Gait disturbance [None]
  - Musculoskeletal pain [None]

NARRATIVE: CASE EVENT DATE: 20141020
